FAERS Safety Report 5029189-0 (Version None)
Quarter: 2006Q2

REPORT INFORMATION
  Report Type: 
  Country: None (occurrence: None)
  Receive Date: 20060613
  Receipt Date: 20060608
  Transmission Date: 20061013
  Serious: Yes (Hospitalization, Other)
  Sender: FDA-Public Use
  Company Number: HQWYE766913FEB06

PATIENT
  Age: 57 Year
  Sex: Female

DRUGS (8)
  1. RAPAMUNE                              (SIROLIMUS) [Suspect]
     Indication: PROPHYLAXIS AGAINST TRANSPLANT REJECTION
     Dosage: 5 MG 1X PER 1 DAY; ORAL
     Route: 048
     Dates: start: 20051027
  2. PREDNISONE TAB [Concomitant]
  3. CELLCEPT [Concomitant]
  4. OMEPRAZOLE [Concomitant]
  5. FUROSEMIDE [Concomitant]
  6. CALCIUM CARBONATE [Concomitant]
  7. POTASSIUM [Concomitant]
  8. AMOXICILLINA + CLAVULANICO (AMOXICILLIN TRIHYDRATE/CLAVULANIC ACID) [Concomitant]

REACTIONS (3)
  - DRUG INEFFECTIVE [None]
  - HAEMODIALYSIS [None]
  - KIDNEY TRANSPLANT REJECTION [None]
